FAERS Safety Report 9416507 (Version 2)
Quarter: 2016Q2

REPORT INFORMATION
  Report Type: Spontaneous
  Country: FR (occurrence: FR)
  Receive Date: 20130724
  Receipt Date: 20160530
  Transmission Date: 20160815
  Serious: Yes (Congenital Anomaly, Other)
  Sender: FDA-Public Use
  Company Number: FR-JNJFOC-20130710511

PATIENT
  Age: 3 Year
  Sex: Male

DRUGS (1)
  1. REMICADE [Suspect]
     Active Substance: INFLIXIMAB
     Indication: CROHN^S DISEASE
     Route: 064

REACTIONS (3)
  - Growth retardation [Not Recovered/Not Resolved]
  - Failure to thrive [Not Recovered/Not Resolved]
  - Psychomotor retardation [Not Recovered/Not Resolved]
